FAERS Safety Report 8303978-9 (Version None)
Quarter: 2012Q2

REPORT INFORMATION
  Report Type: 
  Country: None (occurrence: None)
  Receive Date: 20120423
  Receipt Date: 20120413
  Transmission Date: 20120825
  Serious: Yes (Life-Threatening, Hospitalization, Other)
  Sender: FDA-Public Use
  Company Number: JP-ASTELLAS-2012US002086

PATIENT
  Sex: Male
  Weight: 56 kg

DRUGS (12)
  1. ERLOTINIB HYDROCHLORIDE [Suspect]
     Dosage: 100 MG, UID/QD
     Route: 048
     Dates: start: 20111118, end: 20120103
  2. FENTANYL-100 [Concomitant]
     Indication: PRODUCT USED FOR UNKNOWN INDICATION
     Dosage: 2.1 MG, Q3D
     Route: 062
     Dates: start: 20111122
  3. MAGNESIUM SULFATE [Concomitant]
     Indication: PRODUCT USED FOR UNKNOWN INDICATION
     Dosage: 1980 MG, UID/QD
     Route: 048
  4. GEMCITABINE [Suspect]
     Dosage: 1000 MG/M2, WEEKLY
     Route: 041
     Dates: start: 20111118, end: 20111125
  5. GEMCITABINE [Suspect]
     Indication: ADENOCARCINOMA PANCREAS
     Dosage: 1000 MG/M2, UID/QD
     Route: 041
     Dates: start: 20111104, end: 20111104
  6. GEMCITABINE [Suspect]
     Dosage: 1000 MG/M2, WEEKLY
     Route: 041
     Dates: start: 20111207
  7. OXYCODONE HCL [Suspect]
     Indication: PRODUCT USED FOR UNKNOWN INDICATION
     Dosage: 10 MG, UID/QD
     Route: 048
     Dates: end: 20111121
  8. URSO 250 [Concomitant]
     Indication: PRODUCT USED FOR UNKNOWN INDICATION
     Dosage: 300 MG, UID/QD
     Route: 048
     Dates: start: 20111108
  9. GASMOTIN [Concomitant]
     Indication: PRODUCT USED FOR UNKNOWN INDICATION
     Dosage: 15 MG, UID/QD
     Route: 048
     Dates: start: 20111207
  10. ERLOTINIB HYDROCHLORIDE [Suspect]
     Indication: ADENOCARCINOMA PANCREAS
     Dosage: 100 MG, UID/QD
     Route: 048
     Dates: start: 20111104, end: 20111107
  11. LOXONIN [Concomitant]
     Indication: PRODUCT USED FOR UNKNOWN INDICATION
     Dosage: 180 MG, UID/QD
     Route: 048
  12. GAMOFA [Concomitant]
     Indication: PRODUCT USED FOR UNKNOWN INDICATION
     Dosage: 20 MG, UID/QD
     Route: 048

REACTIONS (8)
  - CHOLANGITIS [None]
  - DERMATITIS ACNEIFORM [None]
  - DECREASED APPETITE [None]
  - CYTOMEGALOVIRUS TEST POSITIVE [None]
  - INTERSTITIAL LUNG DISEASE [None]
  - PARONYCHIA [None]
  - CONSTIPATION [None]
  - NAUSEA [None]
